FAERS Safety Report 6012799-1 (Version None)
Quarter: 2008Q4

REPORT INFORMATION
  Report Type: 
  Country: None (occurrence: None)
  Receive Date: 20081219
  Receipt Date: 20081211
  Transmission Date: 20090506
  Serious: No
  Sender: FDA-Public Use
  Company Number: DE-JNJFOC-20081202724

PATIENT
  Age: 89 Year
  Sex: Female

DRUGS (15)
  1. DURAGESIC-100 [Suspect]
     Route: 062
  2. DURAGESIC-100 [Suspect]
     Route: 062
  3. DURAGESIC-100 [Suspect]
     Indication: DRUG USE FOR UNKNOWN INDICATION
     Route: 062
  4. MOLSIKET [Concomitant]
     Route: 065
  5. BELOC ZOC [Concomitant]
     Route: 065
  6. ISOSORBIDE DINITRATE [Concomitant]
     Route: 065
  7. ASPIRIN [Concomitant]
     Route: 065
  8. INSUMAN COMB 50 [Concomitant]
     Route: 058
  9. DELIX [Concomitant]
     Route: 065
  10. TOREM [Concomitant]
     Route: 065
  11. GABAPENTIN [Concomitant]
     Route: 065
  12. FERRO SANOL DUODENAL [Concomitant]
     Route: 065
  13. LOVASTATIN [Concomitant]
     Route: 065
  14. PANTOZOL [Concomitant]
     Route: 065
  15. NOVAMINSULFON [Concomitant]
     Route: 065

REACTIONS (3)
  - DRUG INEFFECTIVE [None]
  - INCORRECT DOSE ADMINISTERED [None]
  - PAIN [None]
